FAERS Safety Report 15339396 (Version 6)
Quarter: 2019Q1

REPORT INFORMATION
  Report Type: Spontaneous
  Country: CA (occurrence: CA)
  Receive Date: 20180831
  Receipt Date: 20190122
  Transmission Date: 20190417
  Serious: Yes (Death, Hospitalization, Other)
  Sender: FDA-Public Use
  Company Number: PHHY2018CA079813

PATIENT
  Age: 61 Year
  Sex: Female

DRUGS (14)
  1. CICLOSPORIN [Suspect]
     Active Substance: CYCLOSPORINE
     Indication: PYODERMA GANGRENOSUM
     Dosage: UNK
     Route: 042
  2. COLCHICINE. [Suspect]
     Active Substance: COLCHICINE
     Indication: PYODERMA GANGRENOSUM
     Dosage: 0.6 MG, BID
     Route: 048
  3. MINOCYCLINE HYDROCHLORIDE. [Suspect]
     Active Substance: MINOCYCLINE HYDROCHLORIDE
     Indication: PYODERMA GANGRENOSUM
     Dosage: 50 MG, BID
     Route: 048
  4. MINOCYCLINE [Suspect]
     Active Substance: MINOCYCLINE\MINOCYCLINE HYDROCHLORIDE
     Indication: PYODERMA GANGRENOSUM
     Dosage: 100 MG, BID
     Route: 048
  5. MINIMS PREDNISOLONE SODIUM PHOSPHATE [Suspect]
     Active Substance: PREDNISOLONE SODIUM PHOSPHATE
     Indication: PYODERMA GANGRENOSUM
     Route: 048
  6. AZATHIOPRINE. [Suspect]
     Active Substance: AZATHIOPRINE
     Indication: MYASTHENIA GRAVIS
     Dosage: 150 MG, BID
     Route: 048
  7. CARBOXYMETHYLCELLULOSE [Concomitant]
     Active Substance: CARBOXYMETHYLCELLULOSE
     Indication: PRODUCT USED FOR UNKNOWN INDICATION
     Route: 065
  8. PREDNISOLONE. [Suspect]
     Active Substance: PREDNISOLONE
     Indication: PYODERMA GANGRENOSUM
     Dosage: 70 MG, UNK
     Route: 048
  9. PREDNISONE. [Suspect]
     Active Substance: PREDNISONE
     Indication: PYODERMA GANGRENOSUM
     Dosage: UNK
     Route: 048
  10. HYDROCORTISONE. [Suspect]
     Active Substance: HYDROCORTISONE
     Indication: PYODERMA GANGRENOSUM
     Dosage: 50 MG, Q6H
     Route: 042
  11. ARESTIN [Suspect]
     Active Substance: MINOCYCLINE HYDROCHLORIDE
     Indication: PYODERMA GANGRENOSUM
     Dosage: 100 MG, BID
     Route: 048
  12. AZATHIOPRINE. [Suspect]
     Active Substance: AZATHIOPRINE
     Indication: PYODERMA GANGRENOSUM
     Dosage: 100 MG, BID
     Route: 048
  13. FLUTICASONE. [Suspect]
     Active Substance: FLUTICASONE
     Indication: PYODERMA GANGRENOSUM
     Dosage: UNK
     Route: 061
  14. INTRASITE [Concomitant]
     Indication: WOUND
     Dosage: UNK
     Route: 061

REACTIONS (9)
  - Disseminated intravascular coagulation [Fatal]
  - Off label use [Fatal]
  - Hepatic failure [Fatal]
  - Enterococcal sepsis [Fatal]
  - Pulmonary mass [Fatal]
  - Septic shock [Fatal]
  - Urinary tract infection [Fatal]
  - Treatment failure [Fatal]
  - Pancytopenia [Fatal]
